FAERS Safety Report 5817133-5 (Version None)
Quarter: 2008Q3

REPORT INFORMATION
  Report Type: 
  Country: None (occurrence: None)
  Receive Date: 20080722
  Receipt Date: 20080710
  Transmission Date: 20090109
  Serious: Yes (Other)
  Sender: FDA-Public Use
  Company Number: US-ROCHE-533398

PATIENT
  Sex: Female
  Weight: 59 kg

DRUGS (2)
  1. ACCUTANE [Suspect]
     Indication: ACNE
     Dosage: PHYSICIAN MADE NOTE IN JANUARY 1994, THAT PATIENT ENDED PREVIOUS THERAPY AT 50MG PER DAY.
     Route: 065
     Dates: start: 19930501, end: 19931001
  2. ACCUTANE [Suspect]
     Route: 065
     Dates: start: 19940110, end: 19940301

REACTIONS (10)
  - ACNE [None]
  - ANAEMIA [None]
  - ANXIETY [None]
  - COLITIS ULCERATIVE [None]
  - DEPRESSION [None]
  - INFLAMMATORY BOWEL DISEASE [None]
  - JOINT STIFFNESS [None]
  - OVARIAN CYST [None]
  - POUCHITIS [None]
  - RHEUMATOID ARTHRITIS [None]
